FAERS Safety Report 15937631 (Version 2)
Quarter: 2019Q1

REPORT INFORMATION
  Report Type: Spontaneous
  Country: US (occurrence: US)
  Receive Date: 20190208
  Receipt Date: 20190305
  Transmission Date: 20190417
  Serious: Yes (Hospitalization)
  Sender: FDA-Public Use
  Company Number: US-JNJFOC-20190205185

PATIENT
  Sex: Female
  Weight: 59.88 kg

DRUGS (3)
  1. TRESIBA [Suspect]
     Active Substance: INSULIN DEGLUDEC
     Indication: TYPE 2 DIABETES MELLITUS
     Dosage: STRENGTH 50/1000 MG
     Route: 058
     Dates: start: 20170622
  2. SYNTHROID [Concomitant]
     Active Substance: LEVOTHYROXINE SODIUM
     Indication: HYPOTHYROIDISM
     Dosage: STRENGTH 50/1000 MG
     Route: 065
  3. INVOKAMET [Suspect]
     Active Substance: CANAGLIFLOZIN\METFORMIN HYDROCHLORIDE
     Indication: TYPE 2 DIABETES MELLITUS
     Dosage: DOSE 50/1000 MG
     Route: 048
     Dates: start: 201607, end: 20190122

REACTIONS (2)
  - Diabetic ketoacidosis [Recovered/Resolved]
  - Influenza [Recovered/Resolved]
